FAERS Safety Report 9378027 (Version 1)
Quarter: 2013Q3

REPORT INFORMATION
  Report Type: Spontaneous
  Country: US (occurrence: US)
  Receive Date: 20130701
  Receipt Date: 20130701
  Transmission Date: 20140515
  Serious: Yes (Death, Life-Threatening)
  Sender: FDA-Public Use
  Company Number: US-ROXANE LABORATORIES, INC.-2013-RO-01055RO

PATIENT
  Age: 64 Year
  Sex: Male

DRUGS (1)
  1. MORPHINE [Suspect]
     Route: 048

REACTIONS (5)
  - Cardiac arrest [Fatal]
  - Intentional overdose [Unknown]
  - Suicide attempt [Unknown]
  - Renal failure acute [Unknown]
  - Myoclonus [Unknown]
